FAERS Safety Report 15216562 (Version 1)
Quarter: 2018Q3

REPORT INFORMATION
  Report Type: Spontaneous
  Country: US (occurrence: US)
  Receive Date: 20180730
  Receipt Date: 20180730
  Transmission Date: 20181010
  Serious: Yes (Other)
  Sender: FDA-Public Use
  Company Number: US-PFIZER INC-2016495051

PATIENT
  Age: 48 Year
  Sex: Female

DRUGS (2)
  1. SKELAXIN [Suspect]
     Active Substance: METAXALONE
     Dosage: UNK
     Route: 048
  2. SKELAXIN [Suspect]
     Active Substance: METAXALONE
     Dosage: 800 UNK, 4X/DAY
     Route: 048

REACTIONS (4)
  - Haemorrhage [Not Recovered/Not Resolved]
  - Muscle spasms [Unknown]
  - Vocal cord dysfunction [Not Recovered/Not Resolved]
  - Uterine leiomyoma [Not Recovered/Not Resolved]

NARRATIVE: CASE EVENT DATE: 2012
